FAERS Safety Report 7563593-1 (Version None)
Quarter: 2011Q2

REPORT INFORMATION
  Report Type: 
  Country: None (occurrence: None)
  Receive Date: 20110622
  Receipt Date: 20110608
  Transmission Date: 20111010
  Serious: Yes (Hospitalization, Other)
  Sender: FDA-Public Use
  Company Number: BR-JNJFOC-20110308637

PATIENT
  Age: 59 Year
  Sex: Female

DRUGS (7)
  1. ACETAMINOPHEN [Suspect]
  2. ALBUTEROL [Concomitant]
     Indication: BRONCHOSPASM
     Dates: start: 20100101
  3. REMICADE [Suspect]
     Indication: RHEUMATOID ARTHRITIS
     Route: 042
     Dates: start: 20101001
  4. PREDNISOLONE [Concomitant]
     Indication: RHEUMATOID ARTHRITIS
     Route: 048
     Dates: start: 20100101
  5. CALCIUM AND VITAMIN D [Concomitant]
     Indication: RHEUMATOID ARTHRITIS
     Dates: start: 20100101
  6. OMEPRAZOLE [Concomitant]
     Indication: GASTRITIS
     Route: 048
     Dates: start: 20100101
  7. ACETAMINOPHEN [Suspect]
     Indication: PYREXIA
     Dates: start: 20110228

REACTIONS (8)
  - HYPERSENSITIVITY [None]
  - CHEST PAIN [None]
  - SKIN DISCOLOURATION [None]
  - BACK PAIN [None]
  - SWELLING [None]
  - PNEUMONIA [None]
  - PYREXIA [None]
  - SWELLING FACE [None]
